FAERS Safety Report 7930199-1 (Version None)
Quarter: 2011Q4

REPORT INFORMATION
  Report Type: 
  Country: None (occurrence: None)
  Receive Date: 20111108
  Receipt Date: 20110523
  Transmission Date: 20120403
  Serious: Yes (Other)
  Sender: FDA-Public Use
  Company Number: PHHY2011US40386

PATIENT
  Age: 57 Year
  Sex: Female
  Weight: 74 kg

DRUGS (12)
  1. RISPERDAL [Concomitant]
  2. CEFTIN [Concomitant]
  3. ZOMETA [Suspect]
     Indication: BREAST CANCER METASTATIC
     Dosage: QMO, INTRAVENOUS
     Route: 042
     Dates: start: 20071001, end: 20110101
  4. ACETAMINOPHEN [Concomitant]
  5. LISINOPRIL [Concomitant]
  6. HERCEPTIN [Concomitant]
  7. ALDACTONE [Concomitant]
  8. ASPIRIN [Concomitant]
  9. HERCEPTIN [Concomitant]
  10. VICODIN [Concomitant]
  11. FEMARA [Concomitant]
  12. IBUPROFEN [Concomitant]

REACTIONS (15)
  - COUGH [None]
  - POOR DENTAL CONDITION [None]
  - ACTINOMYCOSIS [None]
  - METASTASES TO BONE [None]
  - FATIGUE [None]
  - MASTICATION DISORDER [None]
  - PYREXIA [None]
  - ABSCESS JAW [None]
  - CHILLS [None]
  - OSTEOMYELITIS [None]
  - FACE OEDEMA [None]
  - METASTASES TO LUNG [None]
  - METASTASES TO ADRENALS [None]
  - SPEECH DISORDER [None]
  - OSTEONECROSIS OF JAW [None]
